FAERS Safety Report 18261571 (Version 1)
Quarter: 2020Q3

REPORT INFORMATION
  Report Type: Spontaneous
  Country: DK (occurrence: DK)
  Receive Date: 20200914
  Receipt Date: 20200914
  Transmission Date: 20201103
  Serious: Yes (Hospitalization)
  Sender: FDA-Public Use
  Company Number: DK-ROCHE-2675036

PATIENT
  Age: 52 Year
  Sex: Female

DRUGS (4)
  1. HJERTEMAGNYL [ACETYLSALICYLIC ACID] [Concomitant]
     Active Substance: ASPIRIN
     Indication: THROMBOSIS PROPHYLAXIS
     Dosage: STRENGHT: 75 MG
     Route: 048
     Dates: start: 20150831
  2. VOGALENE [Concomitant]
     Active Substance: METOPIMAZINE
     Indication: NAUSEA
     Dosage: STRENGHT: 15 MG?DOSAGE: 2 CAPSULES WHEN NECESSARY, MAX 3 TIMES DAILY
     Route: 048
     Dates: start: 20200730
  3. ABRAXANE [Concomitant]
     Active Substance: PACLITAXEL
     Indication: BREAST CANCER METASTATIC
     Dosage: STRENGHT: 5 MG/ML
     Route: 042
     Dates: start: 20200617
  4. TECENTRIQ [Suspect]
     Active Substance: ATEZOLIZUMAB
     Indication: BREAST CANCER METASTATIC
     Dosage: STRENGTH: 840 MG IN NACL ISOTON 264 ML?ONLY ONE DOSE ADMINISTRATED.
     Route: 042
     Dates: start: 20200617, end: 20200811

REACTIONS (2)
  - Pyrexia [Unknown]
  - Acute kidney injury [Recovering/Resolving]

NARRATIVE: CASE EVENT DATE: 202007
